FAERS Safety Report 16701901 (Version 3)
Quarter: 2020Q4

REPORT INFORMATION
  Report Type: Spontaneous
  Country: PL (occurrence: PL)
  Receive Date: 20190814
  Receipt Date: 20201130
  Transmission Date: 20210113
  Serious: Yes (Death, Hospitalization, Other)
  Sender: FDA-Public Use
  Company Number: PL-AUROBINDO-AUR-APL-2019-053296

PATIENT
  Age: 85 Year
  Sex: Male

DRUGS (17)
  1. DEXAMETHASONE. [Suspect]
     Active Substance: DEXAMETHASONE
     Indication: DIARRHOEA
     Dosage: 4 MILLIGRAM, ONCE A DAY
     Route: 065
  2. DEXAMETHASONE. [Suspect]
     Active Substance: DEXAMETHASONE
     Indication: ASTHENIA
  3. PANCREATIN [Suspect]
     Active Substance: PANCRELIPASE
     Indication: ASTHENIA
     Dosage: 74000 INTERNATIONAL UNIT, ONCE A DAY
     Route: 065
  4. DEXAMETHASONE. [Suspect]
     Active Substance: DEXAMETHASONE
     Indication: WEIGHT DECREASED
  5. ISOPHANE INSULIN [Concomitant]
     Active Substance: INSULIN NOS
     Dosage: 18 IU (INTERNATIONAL UNIT) DAILY; 6 UNITS BEFORE THE MEALS IN THE MORNING, AT NOON AND IN THE EVENIN
     Route: 065
  6. PERINDOPRIL [Suspect]
     Active Substance: PERINDOPRIL
     Indication: HYPERTENSION
     Dosage: UNK
     Route: 065
  7. PERINDOPRIL [Suspect]
     Active Substance: PERINDOPRIL
     Indication: CARDIAC FAILURE CHRONIC
  8. TORASEMIDE [Suspect]
     Active Substance: TORSEMIDE
     Indication: HYPERTENSION
     Dosage: UNK
     Route: 065
  9. LEVOMEPROMAZINE [Concomitant]
     Active Substance: LEVOMEPROMAZINE
     Indication: PRODUCT USED FOR UNKNOWN INDICATION
     Dosage: LOW DOSE
     Route: 065
  10. DEXAMETHASONE. [Suspect]
     Active Substance: DEXAMETHASONE
     Indication: DECREASED APPETITE
  11. PANCREATIN [Suspect]
     Active Substance: PANCRELIPASE
     Indication: DIARRHOEA
  12. PANCREATIN [Suspect]
     Active Substance: PANCRELIPASE
     Indication: PANCREATIC CARCINOMA
  13. PANCREATIN [Suspect]
     Active Substance: PANCRELIPASE
     Indication: WEIGHT DECREASED
     Dosage: 150000 INTERNATIONAL UNIT, ONCE A DAY
     Route: 065
  14. PANCREATIN [Suspect]
     Active Substance: PANCRELIPASE
     Indication: DECREASED APPETITE
  15. ISOPHANE INSULIN [Concomitant]
     Active Substance: INSULIN NOS
     Dosage: UNK, THERAPY WAS REDUCED TO ISOPHANE INSULIN IN ONE INJECTION IN THE EVENING
     Route: 065
  16. TORASEMIDE [Suspect]
     Active Substance: TORSEMIDE
     Indication: CARDIAC FAILURE CHRONIC
  17. ISOPHANE INSULIN [Concomitant]
     Active Substance: INSULIN NOS
     Indication: PRODUCT USED FOR UNKNOWN INDICATION
     Dosage: 12 IU (INTERNATIONAL UNIT) DAILY; IN THE EVENING
     Route: 065

REACTIONS (20)
  - Weight decreased [Fatal]
  - Pancreatic neoplasm [Fatal]
  - Memory impairment [Fatal]
  - Urinary incontinence [Fatal]
  - Dizziness [Fatal]
  - Diabetes mellitus [Recovered/Resolved]
  - Nausea [Fatal]
  - Malignant neoplasm progression [Unknown]
  - Asthenia [Fatal]
  - Hypotension [Fatal]
  - Diarrhoea [Fatal]
  - Decreased appetite [Fatal]
  - Pancreatic carcinoma [Unknown]
  - Glomerular filtration rate decreased [Unknown]
  - Metastases to liver [Unknown]
  - Hypotonia [Fatal]
  - Dehydration [Unknown]
  - Hyperglycaemia [Unknown]
  - Visual acuity reduced [Fatal]
  - Orthostatic hypotension [Unknown]
